FAERS Safety Report 5795643-7 (Version None)
Quarter: 2008Q2

REPORT INFORMATION
  Report Type: 
  Country: None (occurrence: None)
  Receive Date: 20080630
  Receipt Date: 20080620
  Transmission Date: 20081010
  Serious: Yes (Disabling, Other)
  Sender: FDA-Public Use
  Company Number: US-MERCK-0704USA05976

PATIENT
  Age: 52 Year
  Sex: Female

DRUGS (3)
  1. FOSAMAX [Suspect]
     Indication: OSTEOPOROSIS
     Route: 048
     Dates: start: 20040101, end: 20060501
  2. ZOLOFT [Concomitant]
     Indication: DEPRESSION
     Route: 065
     Dates: start: 20030101
  3. ZOLOFT [Concomitant]
     Indication: BACK INJURY
     Route: 065
     Dates: start: 20030101

REACTIONS (15)
  - ADVERSE EVENT [None]
  - BLOOD CHOLESTEROL INCREASED [None]
  - BRONCHITIS CHRONIC [None]
  - CONJUNCTIVITIS [None]
  - DEAFNESS UNILATERAL [None]
  - DENTAL CARIES [None]
  - DEPRESSION [None]
  - FACIAL PAIN [None]
  - FATIGUE [None]
  - FOOT FRACTURE [None]
  - GINGIVAL BLEEDING [None]
  - HELICOBACTER INFECTION [None]
  - INTERVERTEBRAL DISC PROTRUSION [None]
  - PAIN IN JAW [None]
  - RESORPTION BONE INCREASED [None]
